FAERS Safety Report 5099910-4 (Version None)
Quarter: 2006Q3

REPORT INFORMATION
  Report Type: 
  Country: None (occurrence: None)
  Receive Date: 20060908
  Receipt Date: 20060816
  Transmission Date: 20061208
  Serious: Yes (Hospitalization)
  Sender: FDA-Public Use
  Company Number: GBWYE716616AUG06

PATIENT
  Sex: Female
  Weight: 39 kg

DRUGS (5)
  1. ENBREL [Suspect]
     Indication: POLYARTHRITIS
     Route: 058
     Dates: start: 20060127
  2. FOSAMAX [Concomitant]
     Route: 065
     Dates: start: 20050501
  3. THYROXINE SODIUM [Concomitant]
     Route: 065
     Dates: start: 20030401
  4. DICLOFENAC [Concomitant]
     Route: 065
     Dates: start: 20040501
  5. PARACETAMOL [Concomitant]
     Route: 065
     Dates: start: 20050501

REACTIONS (1)
  - MENTAL DISORDER [None]
